FAERS Safety Report 5954844-5 (Version None)
Quarter: 2008Q4

REPORT INFORMATION
  Report Type: 
  Country: None (occurrence: None)
  Receive Date: 20081117
  Receipt Date: 20081106
  Transmission Date: 20090506
  Serious: Yes (Hospitalization)
  Sender: FDA-Public Use
  Company Number: DE-ASTRAZENECA-2008PK02439

PATIENT
  Age: 866 Month
  Sex: Female
  Weight: 90 kg

DRUGS (5)
  1. NEXIUM [Suspect]
     Indication: DRUG THERAPY
     Route: 048
     Dates: start: 20080724, end: 20080819
  2. AMOXICILLIN [Suspect]
     Indication: DRUG THERAPY
     Route: 048
     Dates: start: 20080802, end: 20080808
  3. KLACID [Concomitant]
     Indication: DRUG THERAPY
     Route: 048
     Dates: start: 20080802, end: 20080808
  4. TORSEMIDE [Concomitant]
  5. ACE-INHIBITOR [Concomitant]

REACTIONS (2)
  - ACUTE GENERALISED EXANTHEMATOUS PUSTULOSIS [None]
  - TUBULOINTERSTITIAL NEPHRITIS [None]
